FAERS Safety Report 12366579 (Version 1)
Quarter: 2016Q2

REPORT INFORMATION
  Report Type: Other
  Country: US (occurrence: US)
  Receive Date: 20160513
  Receipt Date: 20160513
  Transmission Date: 20160815
  Serious: No
  Sender: FDA-Public Use
  Company Number: US-GLENMARK PHARMACEUTICALS INC, USA.-2015GMK018692

PATIENT

DRUGS (1)
  1. CALCIPOTREINE [Suspect]
     Active Substance: CALCIPOTRIENE
     Indication: PSORIASIS
     Dosage: UNK

REACTIONS (4)
  - Product substitution issue [Unknown]
  - Condition aggravated [Unknown]
  - Product physical consistency issue [Unknown]
  - Drug ineffective [Unknown]
